FAERS Safety Report 6770562-8 (Version None)
Quarter: 2010Q2

REPORT INFORMATION
  Report Type: 
  Country: None (occurrence: None)
  Receive Date: 20100615
  Receipt Date: 20100603
  Transmission Date: 20101027
  Serious: Yes (Other)
  Sender: FDA-Public Use
  Company Number: US-SANOFI-AVENTIS-2010SA032757

PATIENT
  Age: 35 Year
  Sex: Female

DRUGS (4)
  1. ZOLPIDEM TARTRATE [Suspect]
     Route: 048
  2. SERTRALINE HCL [Suspect]
     Route: 065
  3. PROMETHAZINE [Suspect]
     Route: 065
  4. TRAZODONE HYDROCHLORIDE [Suspect]
     Route: 065

REACTIONS (1)
  - IMPAIRED DRIVING ABILITY [None]
